FAERS Safety Report 5023738-4 (Version None)
Quarter: 2006Q2

REPORT INFORMATION
  Report Type: 
  Country: None (occurrence: None)
  Receive Date: 20060606
  Receipt Date: 20060523
  Transmission Date: 20061013
  Serious: Yes (Death)
  Sender: FDA-Public Use
  Company Number: 224276

PATIENT
  Age: 70 Year
  Sex: Female

DRUGS (12)
  1. RITUXIMAB (RITUXIMAB) CONC FOR SOLUTION FOR INFUSION [Suspect]
     Indication: CHRONIC LYMPHOCYTIC LEUKAEMIA
     Dosage: 700 MG, Q28D, INTRAVENOUS
     Route: 042
     Dates: start: 20060411, end: 20060411
  2. FLUDARABINE [Suspect]
     Indication: CHRONIC LYMPHOCYTIC LEUKAEMIA
     Dosage: 40 MG, Q28D, INTRAVENOUS
     Route: 042
     Dates: start: 20060412, end: 20060414
  3. CYCLOPHOSPHAMIDE [Suspect]
     Indication: CHRONIC LYMPHOCYTIC LEUKAEMIA
     Dosage: 400 MG, Q28D, INTRAVENOUS
     Route: 042
     Dates: start: 20060412, end: 20060414
  4. SUMETROLIM (SULFAMETHOXAZOLE, TRIMETHOPRIM) [Concomitant]
  5. QUAMATEL (FAMOTIDINE) [Concomitant]
  6. ONDANSETRON HCL [Concomitant]
  7. ACICLOVIRUM (ACYCLOVIR) [Concomitant]
  8. METHYLPREDNISOLONE [Concomitant]
  9. CLOPAMID (CLOPAMIDE) [Concomitant]
  10. ALLOPURINOL [Concomitant]
  11. KALIUM (POTASSIUM NOS) [Concomitant]
  12. CLEMASTINUM (CLEMASTINE) [Concomitant]

REACTIONS (24)
  - ACUTE MYOCARDIAL INFARCTION [None]
  - BLOOD CHOLESTEROL INCREASED [None]
  - BLOOD IMMUNOGLOBULIN M DECREASED [None]
  - BLOOD URIC ACID INCREASED [None]
  - DISEASE PROGRESSION [None]
  - EMBOLISM [None]
  - GASTRIC HAEMORRHAGE [None]
  - HAEMATOCRIT DECREASED [None]
  - HAEMOGLOBIN DECREASED [None]
  - HAEMOLYSIS [None]
  - HEPATOMEGALY [None]
  - HIGH DENSITY LIPOPROTEIN DECREASED [None]
  - INTERNATIONAL NORMALISED RATIO DECREASED [None]
  - LEFT VENTRICULAR FAILURE [None]
  - NEPHROLITHIASIS [None]
  - PERICARDIAL EFFUSION [None]
  - PNEUMONIA [None]
  - PROTHROMBIN LEVEL INCREASED [None]
  - PYREXIA [None]
  - SPLENOMEGALY [None]
  - TUMOUR LYSIS SYNDROME [None]
  - URINARY SEDIMENT PRESENT [None]
  - WEIGHT DECREASED [None]
  - WHITE BLOOD CELLS URINE POSITIVE [None]
